FAERS Safety Report 5124238-3 (Version None)
Quarter: 2006Q4

REPORT INFORMATION
  Report Type: 
  Country: None (occurrence: None)
  Receive Date: 20061010
  Receipt Date: 20061005
  Transmission Date: 20070319
  Serious: Yes (Other)
  Sender: FDA-Public Use
  Company Number: JP-SANOFI-SYNTHELABO-F01200602077

PATIENT
  Age: 82 Year
  Sex: Female
  Weight: 40 kg

DRUGS (5)
  1. GRANISETRON HYDRCHLORIDE [Concomitant]
     Dosage: 3 MG
     Route: 041
     Dates: start: 20050712, end: 20060411
  2. DEXAMETHASONE SODIUM PHOSPHATE [Concomitant]
     Dosage: 8 MG
     Route: 041
     Dates: start: 20050712, end: 20060411
  3. CALCIUM LEVOFOLINATE [Suspect]
     Dosage: 125 MG/BODY=100.8 MG/M2, INFUSION D1+2
     Route: 042
     Dates: start: 20051004, end: 20051005
  4. FLUOROURACIL [Suspect]
     Dosage: 250MG/BODY=201.6 MG/M2 IN BOLUS THEN 750 MG/BODY=604.8 MG/M2 AS INFUSION, D1+2
     Route: 042
     Dates: start: 20051004, end: 20051005
  5. OXALIPLATIN [Suspect]
     Indication: COLON CANCER
     Dosage: 85 MG/BODY=68.5 MG/M2, INFUSION D1
     Route: 042
     Dates: start: 20051004, end: 20051004

REACTIONS (1)
  - BLOOD POTASSIUM INCREASED [None]
